FAERS Safety Report 4981120-X (Version None)
Quarter: 2006Q2

REPORT INFORMATION
  Report Type: 
  Country: None (occurrence: None)
  Receive Date: 20060424
  Receipt Date: 20060413
  Transmission Date: 20061013
  Serious: Yes (Other)
  Sender: FDA-Public Use
  Company Number: US-JNJFOC-20060404125

PATIENT
  Sex: Female
  Weight: 61.24 kg

DRUGS (3)
  1. DURAGESIC-100 [Suspect]
     Route: 062
  2. LORTAB [Concomitant]
     Route: 048
  3. LORTAB [Concomitant]
     Indication: PAIN
     Dosage: 10/500MG 4 IN 24 HR
     Route: 048

REACTIONS (4)
  - ABDOMINAL RIGIDITY [None]
  - DEPRESSION [None]
  - HYPERHIDROSIS [None]
  - PANIC ATTACK [None]
